FAERS Safety Report 11098499 (Version 2)
Quarter: 2015Q2

REPORT INFORMATION
  Report Type: Spontaneous
  Country: US (occurrence: US)
  Receive Date: 20150507
  Receipt Date: 20150519
  Transmission Date: 20150821
  Serious: Yes (Other)
  Sender: FDA-Public Use
  Company Number: US-RB-076790-15

PATIENT
  Age: 49 Year
  Sex: Male

DRUGS (1)
  1. MUCINEX DM [Suspect]
     Active Substance: DEXTROMETHORPHAN HYDROBROMIDE\GUAIFENESIN
     Indication: PRODUCT USED FOR UNKNOWN INDICATION
     Dosage: TOOK 1 TABLET FOR THE FIRST TIME 1 DAY AGO AND 4-5 HRS LATER HE TOOK 2 MORE
     Route: 065
     Dates: start: 20150424

REACTIONS (4)
  - Nausea [Recovered/Resolved]
  - Inappropriate schedule of drug administration [Recovered/Resolved]
  - Delusion [Recovered/Resolved]
  - Pruritus generalised [Recovered/Resolved]

NARRATIVE: CASE EVENT DATE: 201504
